FAERS Safety Report 9311789 (Version 1)
Quarter: 2013Q2

REPORT INFORMATION
  Report Type: Report from Study
  Country: VE (occurrence: VE)
  Receive Date: 20130528
  Receipt Date: 20130528
  Transmission Date: 20140414
  Serious: Yes (Other)
  Sender: FDA-Public Use
  Company Number: PHHY2013VE052334

PATIENT
  Age: 79 Year
  Sex: Female

DRUGS (6)
  1. ACLASTA [Suspect]
     Indication: OSTEOPOROSIS
     Dosage: 5 MG
     Route: 042
     Dates: start: 2008
  2. ACLASTA [Suspect]
     Dosage: 5 MG
     Route: 042
     Dates: start: 2009
  3. ACLASTA [Suspect]
     Dosage: 5 MG
     Route: 042
     Dates: start: 2010
  4. ACLASTA [Suspect]
     Dosage: 5 MG
     Route: 042
     Dates: start: 2011
  5. ARAVA [Concomitant]
     Indication: RHEUMATOID ARTHRITIS
     Dosage: 20 MG,
     Route: 048
  6. CALCIBON D [Concomitant]
     Indication: OSTEOPOROSIS
     Dosage: 1500 MG + 200 IU, DAILY
     Route: 048

REACTIONS (3)
  - Age-related macular degeneration [Recovering/Resolving]
  - Vision blurred [Unknown]
  - Arthralgia [Recovering/Resolving]
